FAERS Safety Report 9638283 (Version 2)
Quarter: 2017Q1

REPORT INFORMATION
  Report Type: Report from Study
  Country: US (occurrence: US)
  Receive Date: 20131022
  Receipt Date: 20170226
  Transmission Date: 20170429
  Serious: Yes (Hospitalization, Other)
  Sender: FDA-Public Use
  Company Number: US-AMGEN-USASP2013074072

PATIENT
  Age: 58 Year
  Sex: Female

DRUGS (1)
  1. ENBREL [Suspect]
     Active Substance: ETANERCEPT
     Indication: RHEUMATOID ARTHRITIS
     Dosage: 50 MG, ONCE WEEKLY
     Route: 065
     Dates: start: 20120815

REACTIONS (6)
  - Uterine cancer [Recovering/Resolving]
  - Vaginal haemorrhage [Recovered/Resolved]
  - Central venous catheterisation [Recovered/Resolved]
  - Abdominal discomfort [Recovered/Resolved]
  - Pulmonary embolism [Unknown]
  - Ovarian cancer [Recovering/Resolving]

NARRATIVE: CASE EVENT DATE: 2013
